FAERS Safety Report 18130376 (Version 2)
Quarter: 2020Q3

REPORT INFORMATION
  Report Type: Report from Study
  Country: FR (occurrence: FR)
  Receive Date: 20200810
  Receipt Date: 20200819
  Transmission Date: 20201103
  Serious: Yes (Hospitalization)
  Sender: FDA-Public Use
  Company Number: FR-KARYOPHARM THERAPEUTICS, INC.-2020KPT000844

PATIENT
  Age: 77 Year
  Sex: Male
  Weight: 78 kg

DRUGS (7)
  1. VELCADE [Concomitant]
     Active Substance: BORTEZOMIB
     Indication: PLASMA CELL MYELOMA
     Dosage: UNK
     Dates: start: 20200724
  2. KAYEXALATE [Concomitant]
     Active Substance: SODIUM POLYSTYRENE SULFONATE
     Indication: PRODUCT USED FOR UNKNOWN INDICATION
     Dosage: 3 DF
     Dates: start: 20200727
  3. ZELITREX [Concomitant]
     Active Substance: VALACYCLOVIR HYDROCHLORIDE
     Indication: PRODUCT USED FOR UNKNOWN INDICATION
     Dosage: 500 MG
     Dates: start: 201101
  4. SELINEXOR [Suspect]
     Active Substance: SELINEXOR
     Indication: PLASMA CELL MYELOMA
     Dosage: 100 MG
     Route: 048
     Dates: start: 20200724, end: 20200731
  5. BACTRIM [Concomitant]
     Active Substance: SULFAMETHOXAZOLE\TRIMETHOPRIM
     Indication: PRODUCT USED FOR UNKNOWN INDICATION
     Dosage: UNK
     Dates: start: 201101
  6. CARFILZOMIB [Concomitant]
     Active Substance: CARFILZOMIB
     Indication: PRODUCT USED FOR UNKNOWN INDICATION
     Dosage: 88 MG
     Dates: start: 20191202, end: 20200715
  7. AMLODIPINE [Concomitant]
     Active Substance: AMLODIPINE BESYLATE
     Indication: PRODUCT USED FOR UNKNOWN INDICATION
     Dosage: 10 MG
     Dates: start: 201001

REACTIONS (9)
  - Acute kidney injury [Recovered/Resolved]
  - Hyperkalaemia [Recovered/Resolved]
  - Dehydration [Recovered/Resolved]
  - Constipation [Unknown]
  - Fatigue [Unknown]
  - Weight decreased [Unknown]
  - Hyponatraemia [Recovered/Resolved]
  - Decreased appetite [Unknown]
  - Neutropenia [Unknown]

NARRATIVE: CASE EVENT DATE: 202007
